FAERS Safety Report 7921357-0 (Version None)
Quarter: 2011Q4

REPORT INFORMATION
  Report Type: 
  Country: None (occurrence: None)
  Receive Date: 20111117
  Receipt Date: 20111115
  Transmission Date: 20120403
  Serious: Yes (Other)
  Sender: FDA-Public Use
  Company Number: IE-ROCHE-791747

PATIENT
  Sex: Male

DRUGS (4)
  1. PREDNISOLONE [Concomitant]
     Indication: CHRONIC LYMPHOCYTIC LEUKAEMIA
     Route: 048
  2. LANSOPRAZOLE [Concomitant]
     Route: 048
  3. MABTHERA [Suspect]
     Indication: CHRONIC LYMPHOCYTIC LEUKAEMIA
     Dosage: FORM : INFUSION
     Route: 065
  4. CALCIUM CARBONATE [Concomitant]
     Route: 048

REACTIONS (3)
  - RENAL FAILURE [None]
  - BRONCHOSPASM [None]
  - CHILLS [None]
